FAERS Safety Report 8532420-8 (Version None)
Quarter: 2012Q3

REPORT INFORMATION
  Report Type: 
  Country: None (occurrence: None)
  Receive Date: 20120724
  Receipt Date: 20120716
  Transmission Date: 20120928
  Serious: No
  Sender: FDA-Public Use
  Company Number: US-BIOGENIDEC-2012BI025608

PATIENT
  Sex: Female

DRUGS (1)
  1. AVONEX [Suspect]
     Indication: MULTIPLE SCLEROSIS
     Route: 030
     Dates: start: 20110724

REACTIONS (6)
  - INJURY [None]
  - MUSCULOSKELETAL STIFFNESS [None]
  - BALANCE DISORDER [None]
  - BACK PAIN [None]
  - CONTUSION [None]
  - FATIGUE [None]
